FAERS Safety Report 8565827-3 (Version None)
Quarter: 2012Q3

REPORT INFORMATION
  Report Type: 
  Country: None (occurrence: None)
  Receive Date: 20120803
  Receipt Date: 20120731
  Transmission Date: 20120928
  Serious: Yes (Life-Threatening, Hospitalization, Disabling, Other)
  Sender: FDA-Public Use
  Company Number: GB-CUBIST-2012S1000441

PATIENT
  Age: 59 Year
  Sex: Female

DRUGS (2)
  1. CLINDAMYCIN HCL [Concomitant]
     Indication: OSTEOMYELITIS
     Dates: start: 20120421
  2. CUBICIN [Suspect]
     Indication: OSTEOMYELITIS
     Dates: start: 20120426, end: 20120502

REACTIONS (1)
  - HYPERPARATHYROIDISM [None]
